FAERS Safety Report 4379169-3 (Version None)
Quarter: 2004Q2

REPORT INFORMATION
  Report Type: 
  Country: None (occurrence: None)
  Receive Date: 20040610
  Receipt Date: 20040525
  Transmission Date: 20050107
  Serious: Yes (Hospitalization)
  Sender: FDA-Public Use
  Company Number: NSADSS2003024184

PATIENT
  Age: 53 Year
  Sex: Female
  Weight: 53.1616 kg

DRUGS (5)
  1. PROCRIT [Suspect]
     Indication: HIV INFECTION
     Dosage: 4000 IU, 1 IN 1 WEEK
     Dates: start: 20030501, end: 20030512
  2. CELEXA [Suspect]
  3. RISPERDAL [Suspect]
  4. COMBIVIR [Concomitant]
  5. KALETRA [Concomitant]

REACTIONS (5)
  - ALCOHOL INTERACTION [None]
  - ALCOHOL USE [None]
  - CONVULSION [None]
  - DRUG INTERACTION [None]
  - HAEMOGLOBIN DECREASED [None]
